FAERS Safety Report 4908430-6 (Version None)
Quarter: 2006Q1

REPORT INFORMATION
  Report Type: 
  Country: None (occurrence: None)
  Receive Date: 20060210
  Receipt Date: 20060203
  Transmission Date: 20060701
  Serious: Yes (Hospitalization, Other)
  Sender: FDA-Public Use
  Company Number: FR-BRISTOL-MYERS SQUIBB COMPANY-13276043

PATIENT
  Age: 49 Year
  Sex: Male

DRUGS (6)
  1. SUSTIVA [Suspect]
     Indication: HIV INFECTION
     Route: 048
     Dates: start: 20001201, end: 20040301
  2. VIDEX [Suspect]
     Indication: HIV INFECTION
     Route: 048
     Dates: start: 20001201, end: 20040301
  3. ZERIT [Suspect]
     Indication: HIV INFECTION
     Route: 048
     Dates: start: 20001201, end: 20040301
  4. EPIVIR [Suspect]
     Indication: HIV INFECTION
     Dates: start: 20040301
  5. ZIAGEN [Suspect]
     Indication: HIV INFECTION
     Dates: start: 20040301
  6. KALETRA [Suspect]
     Indication: HIV INFECTION
     Dates: start: 20040301

REACTIONS (2)
  - HEPATOSPLENOMEGALY [None]
  - PORTAL HYPERTENSION [None]
